FAERS Safety Report 24139433 (Version 1)
Quarter: 2024Q3

REPORT INFORMATION
  Report Type: Spontaneous
  Country: US (occurrence: US)
  Receive Date: 20240726
  Receipt Date: 20240726
  Transmission Date: 20241017
  Serious: No
  Sender: JOHNSON AND JOHNSON
  Company Number: US-JNJFOC-20240761252

PATIENT
  Age: 6 Year
  Sex: Male

DRUGS (5)
  1. RISPERDAL M-TAB [Suspect]
     Active Substance: RISPERIDONE
     Indication: Agitation
     Dosage: 1 MG PRN
     Route: 048
     Dates: start: 20050908
  2. RISPERDAL M-TAB [Suspect]
     Active Substance: RISPERIDONE
     Route: 048
     Dates: start: 20050911
  3. RISPERDAL M-TAB [Suspect]
     Active Substance: RISPERIDONE
     Route: 048
     Dates: start: 20050913
  4. RISPERDAL M-TAB [Suspect]
     Active Substance: RISPERIDONE
     Dosage: 2 MG MORNING AND 2 MG EVENING
     Route: 048
     Dates: start: 20050915
  5. RISPERDAL M-TAB [Suspect]
     Active Substance: RISPERIDONE
     Dosage: 1 MG 3 TIMES
     Route: 048
     Dates: start: 20050918, end: 200509

REACTIONS (2)
  - Drug ineffective [Unknown]
  - Off label use [Unknown]

NARRATIVE: CASE EVENT DATE: 20050901
